FAERS Safety Report 7112468-0 (Version None)
Quarter: 2010Q4

REPORT INFORMATION
  Report Type: 
  Country: None (occurrence: None)
  Receive Date: 20101119
  Receipt Date: 20101013
  Transmission Date: 20110411
  Serious: Yes (Hospitalization, Other)
  Sender: FDA-Public Use
  Company Number: US-BAYER-201010770NA

PATIENT
  Age: 48 Year
  Sex: Female
  Weight: 68 kg

DRUGS (3)
  1. YASMIN [Suspect]
     Indication: CONTRACEPTION
     Route: 048
     Dates: start: 20070101, end: 20080701
  2. SEROQUEL [Concomitant]
     Indication: BIPOLAR DISORDER
     Route: 065
     Dates: start: 20031101
  3. KEPPRA [Concomitant]
     Indication: BIPOLAR DISORDER
     Route: 065
     Dates: start: 20040901

REACTIONS (5)
  - DEEP VEIN THROMBOSIS [None]
  - FATIGUE [None]
  - HYPERSOMNIA [None]
  - OEDEMA PERIPHERAL [None]
  - PAIN [None]
